FAERS Safety Report 10156078 (Version 1)
Quarter: 2014Q2

REPORT INFORMATION
  Report Type: Report from Study
  Country: US (occurrence: US)
  Receive Date: 20140506
  Receipt Date: 20140506
  Transmission Date: 20141212
  Serious: Yes (Other)
  Sender: FDA-Public Use
  Company Number: PHEH2014US008946

PATIENT
  Sex: Male

DRUGS (1)
  1. EXFORGE HCT [Suspect]
     Dosage: UKN MG OF VALS / 10 MG OF AMLO / UKN MG OF HYDR
     Route: 048

REACTIONS (1)
  - Leukaemia [Unknown]
